FAERS Safety Report 9253625 (Version 2)
Quarter: 2013Q2

REPORT INFORMATION
  Report Type: Spontaneous
  Country: GB (occurrence: GB)
  Receive Date: 20130425
  Receipt Date: 20130507
  Transmission Date: 20140414
  Serious: Yes (Hospitalization)
  Sender: FDA-Public Use
  Company Number: GB-RANBAXY-2013R1-67943

PATIENT
  Age: 64 Year
  Sex: Male
  Weight: 82.55 kg

DRUGS (6)
  1. ASPIRIN [Suspect]
     Indication: CARDIOVASCULAR EVENT PROPHYLAXIS
     Dosage: 75 MG, QD
     Route: 048
     Dates: end: 20130314
  2. CO-DYDRAMOL [Suspect]
     Indication: SCIATICA
     Dosage: 2 DF, QID
     Route: 065
  3. IBUPROFEN [Suspect]
     Indication: SCIATICA
     Dosage: 400 MG, TID
     Route: 048
     Dates: start: 20130308
  4. IBUPROFEN [Suspect]
     Indication: SCIATICA
     Dosage: 400 MG, QD
     Route: 048
     Dates: end: 20130312
  5. BENDROFLUMETHIAZIDE [Concomitant]
     Indication: PRODUCT USED FOR UNKNOWN INDICATION
     Dosage: 2.5 MG, QD
     Route: 065
  6. PERINDOPRIL ERBUMINE [Concomitant]
     Indication: PRODUCT USED FOR UNKNOWN INDICATION
     Dosage: 4 MG, QD
     Route: 065

REACTIONS (6)
  - Dizziness [Unknown]
  - Lethargy [Unknown]
  - Melaena [Unknown]
  - Nausea [Unknown]
  - Upper gastrointestinal haemorrhage [Recovered/Resolved]
  - Vomiting [Unknown]
